FAERS Safety Report 9263373 (Version 1)
Quarter: 2013Q2

REPORT INFORMATION
  Report Type: Spontaneous
  Country: US (occurrence: US)
  Receive Date: 20130430
  Receipt Date: 20130430
  Transmission Date: 20140414
  Serious: No
  Sender: FDA-Public Use
  Company Number: US-ABBOTT-12P-163-0980538-00

PATIENT
  Age: 78 Year
  Sex: Female
  Weight: 59.93 kg

DRUGS (2)
  1. CREON [Suspect]
     Indication: PANCREATIC CARCINOMA
     Dosage: WITH EACH MEAL
     Dates: start: 20120911, end: 20120915
  2. XALATAN [Concomitant]
     Indication: GLAUCOMA

REACTIONS (3)
  - Abdominal discomfort [Recovered/Resolved]
  - Abdominal pain upper [Recovered/Resolved]
  - Nausea [Recovered/Resolved]
